FAERS Safety Report 11378641 (Version 1)
Quarter: 2015Q3

REPORT INFORMATION
  Report Type: Spontaneous
  Country: US (occurrence: None)
  Receive Date: 20150812
  Receipt Date: 20150812
  Transmission Date: 20151125
  Serious: Yes (Other)
  Sender: FDA-Public Use
  Company Number: DEP_03316_2015

PATIENT
  Age: 73 Year

DRUGS (1)
  1. GRALISE [Suspect]
     Active Substance: GABAPENTIN
     Indication: PRODUCT USED FOR UNKNOWN INDICATION
     Dosage: 1800 MG, QD, WITH THE EVENING MEAL ORAL
     Route: 048

REACTIONS (3)
  - Dysarthria [None]
  - Amnesia [None]
  - Prescribed overdose [None]
